FAERS Safety Report 14032749 (Version 1)
Quarter: 2017Q4

REPORT INFORMATION
  Report Type: Spontaneous
  Country: US (occurrence: US)
  Receive Date: 20171003
  Receipt Date: 20171003
  Transmission Date: 20180321
  Serious: Yes (Other)
  Sender: FDA-Public Use
  Company Number: US-JNJFOC-20170930027

PATIENT
  Age: 79 Year
  Sex: Female
  Weight: 63 kg

DRUGS (2)
  1. IMBRUVICA [Suspect]
     Active Substance: IBRUTINIB
     Indication: NON-HODGKIN^S LYMPHOMA
     Route: 048
     Dates: start: 20170425, end: 2017
  2. IMBRUVICA [Suspect]
     Active Substance: IBRUTINIB
     Indication: NON-HODGKIN^S LYMPHOMA
     Route: 048
     Dates: start: 2017

REACTIONS (4)
  - Off label use [Unknown]
  - Body height decreased [Unknown]
  - Incorrect dose administered [Unknown]
  - Shoulder operation [Unknown]

NARRATIVE: CASE EVENT DATE: 20170425
